FAERS Safety Report 15016446 (Version 1)
Quarter: 2018Q2

REPORT INFORMATION
  Report Type: Spontaneous
  Country: US (occurrence: US)
  Receive Date: 20180531
  Receipt Date: 20180531
  Transmission Date: 20180711
  Serious: Yes (Other)
  Sender: FDA-Public Use
  Company Number: None

PATIENT
  Sex: Male

DRUGS (2)
  1. METOPROLOL TART  TAB 25MG [Concomitant]
     Dates: start: 20150815
  2. TAMSULOSIN CAP [Suspect]
     Active Substance: TAMSULOSIN
     Indication: PROSTATOMEGALY
     Route: 048

REACTIONS (5)
  - Nausea [None]
  - Tachycardia [None]
  - Dyspnoea [None]
  - Product substitution issue [None]
  - Fatigue [None]
